FAERS Safety Report 15989368 (Version 1)
Quarter: 2019Q1

REPORT INFORMATION
  Report Type: Spontaneous
  Country: US (occurrence: US)
  Receive Date: 20190221
  Receipt Date: 20190221
  Transmission Date: 20190418
  Serious: No
  Sender: FDA-Public Use
  Company Number: US-PFIZER INC-2019074278

PATIENT
  Age: 63 Year
  Sex: Female
  Weight: 53.97 kg

DRUGS (2)
  1. SILDENAFIL CITRATE. [Suspect]
     Active Substance: SILDENAFIL CITRATE
  2. TYVASO [Suspect]
     Active Substance: TREPROSTINIL
     Indication: PULMONARY ARTERIAL HYPERTENSION
     Dosage: 0.6 MG/ML, 4X/DAY(3-9 BREATHS INHALED)
     Route: 055
     Dates: start: 20180927

REACTIONS (2)
  - Heart rate increased [Unknown]
  - Dyspnoea [Unknown]
